FAERS Safety Report 9312602 (Version 1)
Quarter: 2013Q2

REPORT INFORMATION
  Report Type: Spontaneous
  Country: US (occurrence: US)
  Receive Date: 20130528
  Receipt Date: 20130528
  Transmission Date: 20140414
  Serious: No
  Sender: FDA-Public Use
  Company Number: US-BAYER-2013-065851

PATIENT
  Age: 50 Year
  Sex: Female

DRUGS (1)
  1. ANGELIQ [Suspect]
     Indication: FATIGUE
     Dosage: UNK
     Route: 048
     Dates: start: 2010, end: 20130517

REACTIONS (2)
  - Off label use [None]
  - Drug dose omission [None]
